FAERS Safety Report 7632418-8 (Version None)
Quarter: 2011Q3

REPORT INFORMATION
  Report Type: 
  Country: None (occurrence: None)
  Receive Date: 20110725
  Receipt Date: 20100901
  Transmission Date: 20111222
  Serious: No
  Sender: FDA-Public Use
  Company Number: US-BRISTOL-MYERS SQUIBB COMPANY-15265465

PATIENT
  Age: 70 Year
  Sex: Male
  Weight: 83 kg

DRUGS (11)
  1. CARVEDILOL [Concomitant]
     Dosage: 1DF=12.5 UNIT NOT SPECIFIED
  2. VITAMIN TAB [Concomitant]
     Dosage: TABLET
  3. FUROSEMIDE [Concomitant]
  4. OMEPRAZOLE [Concomitant]
  5. LOVASTATIN [Concomitant]
  6. ENALAPRIL MALEATE [Concomitant]
  7. RANEXA [Concomitant]
  8. FOLIC ACID [Concomitant]
  9. WARFARIN SODIUM [Suspect]
     Dates: start: 20100801
  10. METFORMIN HCL [Concomitant]
  11. MINERAL TAB [Concomitant]
     Dosage: TABLET

REACTIONS (1)
  - DYSGEUSIA [None]
